FAERS Safety Report 8910668 (Version 1)
Quarter: 2012Q4

REPORT INFORMATION
  Report Type: Spontaneous
  Country: GB (occurrence: None)
  Receive Date: 20121108
  Receipt Date: 20121108
  Transmission Date: 20130627
  Serious: Yes (Other)
  Sender: FDA-Public Use
  Company Number: GER/UKI/12/0026526

PATIENT
  Age: 40 Year
  Sex: Female
  Weight: 72 kg

DRUGS (10)
  1. CETIRIZINE HYDROCHLORIDE [Suspect]
     Indication: ITCHY RASH
     Route: 048
     Dates: start: 20120920, end: 20121002
  2. BETNOVATE [Suspect]
     Indication: ITCHY RASH
     Dosage: 2 in 1 D, Topical
     Route: 061
     Dates: start: 20120922, end: 20121007
  3. PHENOXYMETHYLPENICILLIN [Suspect]
     Indication: DRUG USE FOR UNKNOWN INDICATION
     Dosage: 500 mg, 4 in 1 D, Oral
     Route: 048
     Dates: start: 20120921, end: 20120928
  4. CHLORPHENIRAMINE [Suspect]
     Indication: ITCHING
     Dosage: 4 mg, 1 in 1 D, Oral
     Route: 048
     Dates: start: 20120921, end: 20121002
  5. NAPROXEN [Suspect]
     Indication: SWELLING
     Dosage: 500 mg, 2 in 1 D, Oral
     Route: 048
     Dates: start: 20120920, end: 20120923
  6. NAPROXEN [Suspect]
     Indication: ITCHING
     Dosage: 500 mg, 2 in 1 D, Oral
     Route: 048
     Dates: start: 20120920, end: 20120923
  7. ENANTYUM [Suspect]
     Indication: ANKLE SPRAIN
     Dosage: 25 mg, 3 in 1 D, Oral
     Route: 048
     Dates: start: 20120909, end: 20120915
  8. EURAX [Suspect]
     Indication: ITCHY RASH
     Route: 061
     Dates: start: 20120920, end: 20120922
  9. FLOGOPROFEN (ETOFENAMATE) [Suspect]
     Indication: ANKLE SPRAIN
     Route: 061
     Dates: start: 20120911, end: 20120918
  10. FLUCLOXACILLIN [Suspect]
     Indication: DRUG USE FOR UNKNOWN INDICATION
     Dosage: 500 mg, 4 in 1 D, Oral
     Route: 048
     Dates: start: 20120921, end: 20120928

REACTIONS (11)
  - Joint swelling [None]
  - Blister [None]
  - Dermatitis infected [None]
  - Rash pruritic [None]
  - Rash [None]
  - Skin exfoliation [None]
  - Gait disturbance [None]
  - Impaired driving ability [None]
  - Oedema peripheral [None]
  - Dermatitis contact [None]
  - Oedema peripheral [None]
